FAERS Safety Report 7751201-6 (Version None)
Quarter: 2011Q3

REPORT INFORMATION
  Report Type: 
  Country: None (occurrence: None)
  Receive Date: 20110914
  Receipt Date: 20060515
  Transmission Date: 20111222
  Serious: Yes (Other)
  Sender: FDA-Public Use
  Company Number: PHHY2006NL02730

PATIENT
  Sex: Female

DRUGS (2)
  1. SANDOSTATIN LAR [Suspect]
     Indication: GASTROINTESTINAL STOMA COMPLICATION
     Dosage: 30 MG, ONCE PER 4 WEEKS
     Dates: start: 20050912
  2. SANDOSTATIN LAR [Suspect]
     Dosage: 30 MG, ONCE PER 4 WEEKS
     Dates: start: 20060424

REACTIONS (1)
  - FLUID RETENTION [None]
